FAERS Safety Report 9629266 (Version 1)
Quarter: 2013Q4

REPORT INFORMATION
  Report Type: Spontaneous
  Country: US (occurrence: US)
  Receive Date: 20131017
  Receipt Date: 20131017
  Transmission Date: 20140711
  Serious: No
  Sender: FDA-Public Use
  Company Number: US-ASTRAZENECA-2013SE66808

PATIENT
  Sex: 0

DRUGS (2)
  1. CRESTOR [Suspect]
     Route: 048
  2. VIVALAN [Interacting]
     Route: 065
     Dates: start: 201305

REACTIONS (2)
  - Drug interaction [Unknown]
  - Myalgia [Unknown]
